FAERS Safety Report 11323646 (Version 1)
Quarter: 2015Q3

REPORT INFORMATION
  Report Type: Spontaneous
  Country: JP (occurrence: JP)
  Receive Date: 20150730
  Receipt Date: 20150730
  Transmission Date: 20151125
  Serious: Yes (Other)
  Sender: FDA-Public Use
  Company Number: JP-MYLANLABS-2015M1025770

PATIENT

DRUGS (1)
  1. EPIPEN [Suspect]
     Active Substance: EPINEPHRINE
     Indication: DYSPNOEA
     Dosage: 0.3 MG, DAILY
     Route: 030

REACTIONS (2)
  - Product use issue [Unknown]
  - Expired product administered [Unknown]
